FAERS Safety Report 20830364 (Version 4)
Quarter: 2022Q4

REPORT INFORMATION
  Report Type: Report from Study
  Country: CL (occurrence: CL)
  Receive Date: 20220514
  Receipt Date: 20221104
  Transmission Date: 20230113
  Serious: Yes (Other)
  Sender: FDA-Public Use
  Company Number: CL-JNJFOC-20220527366

PATIENT
  Age: 57 Year
  Sex: Female

DRUGS (1)
  1. SIMPONI [Suspect]
     Active Substance: GOLIMUMAB
     Indication: Rheumatoid arthritis
     Route: 058
     Dates: start: 20211214

REACTIONS (7)
  - Cellulitis [Not Recovered/Not Resolved]
  - Visual impairment [Unknown]
  - Gout [Unknown]
  - Spinal pain [Unknown]
  - Pelvic pain [Unknown]
  - Skin lesion [Unknown]
  - Onychomycosis [Unknown]

NARRATIVE: CASE EVENT DATE: 20220101
